FAERS Safety Report 7525939-X (Version None)
Quarter: 2011Q2

REPORT INFORMATION
  Report Type: 
  Country: None (occurrence: None)
  Receive Date: 20110603
  Receipt Date: 20110603
  Transmission Date: 20111010
  Serious: Yes (Life-Threatening)
  Sender: FDA-Public Use
  Company Number: None

PATIENT
  Sex: Female
  Weight: 99.7913 kg

DRUGS (1)
  1. CLONAZAPAM [Suspect]
     Indication: ANXIETY
     Dosage: 2MG 4 TIMES A DAY
     Dates: start: 20100701, end: 20110101

REACTIONS (2)
  - DRUG WITHDRAWAL SYNDROME [None]
  - ADVERSE DRUG REACTION [None]
